FAERS Safety Report 5246926-0 (Version None)
Quarter: 2007Q1

REPORT INFORMATION
  Report Type: 
  Country: None (occurrence: None)
  Receive Date: 20070226
  Receipt Date: 20070208
  Transmission Date: 20070707
  Serious: Yes (Hospitalization)
  Sender: FDA-Public Use
  Company Number: CA-BOEHRINGER INGELHEIM PHARMACEUTICALS, INC.-2007-CN-00150CN

PATIENT
  Sex: Male

DRUGS (2)
  1. FLOMAX [Suspect]
  2. FLOMAX [Suspect]

REACTIONS (1)
  - DELIRIUM [None]
